FAERS Safety Report 5975512-X (Version None)
Quarter: 2008Q4

REPORT INFORMATION
  Report Type: 
  Country: None (occurrence: None)
  Receive Date: 20081202
  Receipt Date: 20081010
  Transmission Date: 20090506
  Serious: No
  Sender: FDA-Public Use
  Company Number: US-BAYER-200825087NA

PATIENT
  Age: 59 Year

DRUGS (1)
  1. MAGNEVIST [Suspect]
     Indication: NUCLEAR MAGNETIC RESONANCE IMAGING BRAIN
     Dosage: AS USED: 20 ML  UNIT DOSE: 20 ML
     Route: 042
     Dates: start: 20080522, end: 20080522

REACTIONS (1)
  - URTICARIA [None]
